FAERS Safety Report 6846258-0 (Version None)
Quarter: 2010Q3

REPORT INFORMATION
  Report Type: 
  Country: None (occurrence: None)
  Receive Date: 20100715
  Receipt Date: 20070912
  Transmission Date: 20110219
  Serious: No
  Sender: FDA-Public Use
  Company Number: US-PFIZER INC-2007076867

PATIENT
  Sex: Male
  Weight: 81.8 kg

DRUGS (11)
  1. CHANTIX [Suspect]
     Indication: SMOKING CESSATION THERAPY
     Route: 048
     Dates: start: 20070901
  2. ASPIRIN [Concomitant]
  3. BECOSYM FORTE [Concomitant]
  4. FOLIC ACID [Concomitant]
  5. HYDROCHLOROTHIAZIDE [Concomitant]
  6. LISINOPRIL [Concomitant]
  7. ALLERGY MEDICATION [Concomitant]
  8. CENTRUM [Concomitant]
  9. GARLIC [Concomitant]
  10. CLONAZEPAM [Concomitant]
  11. MIRTAZAPINE [Concomitant]

REACTIONS (1)
  - CONSTIPATION [None]
